FAERS Safety Report 6251545-3 (Version None)
Quarter: 2009Q2

REPORT INFORMATION
  Report Type: 
  Country: None (occurrence: None)
  Receive Date: 20090630
  Receipt Date: 20090624
  Transmission Date: 20091009
  Serious: Yes (Hospitalization)
  Sender: FDA-Public Use
  Company Number: CA-WATSON-2008-03636

PATIENT
  Age: 75 Year
  Sex: Female

DRUGS (6)
  1. DILTIA XT (WATSON LABORATORIES) [Suspect]
     Indication: HYPERTENSION
     Dosage: UNK
     Dates: start: 20080101
  2. CEFOTAXIME [Concomitant]
     Indication: PNEUMONIA
  3. CLARITHROMYCIN [Concomitant]
     Indication: PNEUMONIA
  4. AMIODARONE HCL [Concomitant]
     Indication: ATRIAL FIBRILLATION
  5. DIGOXIN [Concomitant]
     Indication: TACHYARRHYTHMIA
  6. METOPROLOL SUCCINATE [Concomitant]
     Indication: TACHYARRHYTHMIA

REACTIONS (3)
  - ERYTHEMA MULTIFORME [None]
  - LEUKOCYTOSIS [None]
  - PYREXIA [None]
